FAERS Safety Report 5992128-X (Version None)
Quarter: 2008Q4

REPORT INFORMATION
  Report Type: 
  Country: None (occurrence: None)
  Receive Date: 20081211
  Receipt Date: 20081205
  Transmission Date: 20090506
  Serious: Yes (Other)
  Sender: FDA-Public Use
  Company Number: FR-ABBOTT-08P-056-0491835-00

PATIENT
  Sex: Male

DRUGS (2)
  1. ENANTONE LP 30MG PREP INJ [Suspect]
     Indication: PROSTATE CANCER
     Route: 058
     Dates: start: 20081015
  2. CELIPROLOL [Concomitant]
     Indication: HYPERTENSION
     Route: 048

REACTIONS (3)
  - INJECTION SITE ERYTHEMA [None]
  - INJECTION SITE SWELLING [None]
  - INJECTION SITE WARMTH [None]
